FAERS Safety Report 5158121-4 (Version None)
Quarter: 2006Q4

REPORT INFORMATION
  Report Type: 
  Country: None (occurrence: None)
  Receive Date: 20061117
  Receipt Date: 20061103
  Transmission Date: 20070319
  Serious: Yes (Other)
  Sender: FDA-Public Use
  Company Number: 2006EU002739

PATIENT
  Sex: Female

DRUGS (5)
  1. PROGRAF [Suspect]
     Indication: HEART TRANSPLANT
     Dosage: 3 MG, BID, ORAL
     Route: 048
  2. PREDNISONE [Suspect]
     Indication: HEART TRANSPLANT
     Dosage: 5 MG, D, ORAL
     Route: 048
  3. IMURAN [Suspect]
     Indication: HEART TRANSPLANT
     Dosage: 50 MG, D, ORAL
     Route: 048
  4. PRAVASTATIN [Suspect]
     Dosage: 40 MG, D, ORAL
     Route: 048
  5. PANTOPRAZOLE SODIUM [Suspect]
     Dosage: 20 MG, D, ORAL
     Route: 048

REACTIONS (4)
  - ABORTION INDUCED [None]
  - DRUG EXPOSURE DURING PREGNANCY [None]
  - PLACENTAL DISORDER [None]
  - PREGNANCY [None]
